FAERS Safety Report 19004357 (Version 2)
Quarter: 2021Q2

REPORT INFORMATION
  Report Type: Spontaneous
  Country: JP (occurrence: JP)
  Receive Date: 20210312
  Receipt Date: 20210426
  Transmission Date: 20210717
  Serious: Yes (Hospitalization, Other)
  Sender: FDA-Public Use
  Company Number: JP-ASTRAZENECA-2021A122235

PATIENT
  Sex: Female

DRUGS (2)
  1. TAGRISSO [Suspect]
     Active Substance: OSIMERTINIB
     Indication: NON-SMALL CELL LUNG CANCER
     Route: 048
     Dates: start: 201912
  2. TAGRISSO [Suspect]
     Active Substance: OSIMERTINIB
     Indication: NON-SMALL CELL LUNG CANCER
     Route: 048

REACTIONS (10)
  - Pain in extremity [Unknown]
  - Eczema [Unknown]
  - Drug ineffective [Unknown]
  - Pleural effusion [Unknown]
  - Carcinoembryonic antigen increased [Unknown]
  - Hepatic function abnormal [Recovered/Resolved]
  - Cardiac dysfunction [Recovered/Resolved]
  - Skin atrophy [Unknown]
  - Diarrhoea [Unknown]
  - Skin disorder [Unknown]

NARRATIVE: CASE EVENT DATE: 202103
